FAERS Safety Report 24282043 (Version 1)
Quarter: 2024Q3

REPORT INFORMATION
  Report Type: Spontaneous
  Country: US (occurrence: None)
  Receive Date: 20240903
  Receipt Date: 20240903
  Transmission Date: 20241016
  Serious: No
  Sender: Public
  Company Number: None

PATIENT
  Age: 35 Year
  Sex: Male
  Weight: 67.5 kg

DRUGS (2)
  1. AVOBENZONE\HOMOSALATE\OCTISALATE\OCTOCRYLENE\OXYBENZONE [Suspect]
     Active Substance: AVOBENZONE\HOMOSALATE\OCTISALATE\OCTOCRYLENE\OXYBENZONE
     Dosage: FREQUENCY : AS NEEDED;?
     Route: 061
  2. VITAMIN D [Concomitant]
     Active Substance: VITAMIN D NOS

REACTIONS (4)
  - Application site erythema [None]
  - Eye irritation [None]
  - Paranasal sinus discomfort [None]
  - Rhinorrhoea [None]

NARRATIVE: CASE EVENT DATE: 20230903
